FAERS Safety Report 25965106 (Version 1)
Quarter: 2025Q4

REPORT INFORMATION
  Report Type: Spontaneous
  Country: US (occurrence: US)
  Receive Date: 20251027
  Receipt Date: 20251027
  Transmission Date: 20260118
  Serious: Yes (Other)
  Sender: JOHNSON AND JOHNSON
  Company Number: US-JNJFOC-20250935898

PATIENT
  Sex: Female

DRUGS (2)
  1. ELMIRON [Suspect]
     Active Substance: PENTOSAN POLYSULFATE SODIUM
     Indication: Cystitis interstitial
     Dosage: INSTILLED BLADDER
     Route: 066
  2. ELMIRON [Suspect]
     Active Substance: PENTOSAN POLYSULFATE SODIUM
     Dosage: INSTILLED BLADDER
     Route: 048
     Dates: end: 20220613

REACTIONS (4)
  - Dry age-related macular degeneration [Unknown]
  - Maculopathy [Unknown]
  - Off label use [Unknown]
  - Off label use [Unknown]
